FAERS Safety Report 6221529-X (Version None)
Quarter: 2009Q2

REPORT INFORMATION
  Report Type: 
  Country: None (occurrence: None)
  Receive Date: 20090610
  Receipt Date: 20090604
  Transmission Date: 20091009
  Serious: Yes (Death, Hospitalization, Other)
  Sender: FDA-Public Use
  Company Number: PHHY2009TH22252

PATIENT
  Age: 48 Year
  Sex: Male

DRUGS (2)
  1. ZOLEDRONIC ACID [Suspect]
     Indication: METASTASES TO BONE
     Dosage: 4 MG, QMO
     Route: 042
     Dates: start: 20040401
  2. ZOLEDRONIC ACID [Suspect]
     Indication: PAIN

REACTIONS (11)
  - ABSCESS [None]
  - BONE DISORDER [None]
  - IMPAIRED HEALING [None]
  - MALIGNANT NEOPLASM PROGRESSION [None]
  - ORAL INFECTION [None]
  - OSTEONECROSIS [None]
  - PATHOLOGICAL FRACTURE [None]
  - SURGERY [None]
  - SWELLING [None]
  - TOOTH EXTRACTION [None]
  - WOUND DEHISCENCE [None]
